FAERS Safety Report 17668629 (Version 1)
Quarter: 2020Q2

REPORT INFORMATION
  Report Type: Spontaneous
  Country: US (occurrence: US)
  Receive Date: 20200415
  Receipt Date: 20200415
  Transmission Date: 20200713
  Serious: Yes (Hospitalization)
  Sender: FDA-Public Use
  Company Number: US-009507513-2004USA003702

PATIENT
  Age: 67 Year
  Sex: Female

DRUGS (3)
  1. KEYTRUDA [Suspect]
     Active Substance: PEMBROLIZUMAB
     Indication: LUNG CANCER METASTATIC
     Dosage: 200 MILLIGRAM, EVERY THREE WEEKS
     Route: 042
  2. KEYTRUDA [Suspect]
     Active Substance: PEMBROLIZUMAB
     Dosage: 200 MILLIGRAM, EVERY THREE WEEKS
     Route: 042
     Dates: start: 20200309, end: 20200309
  3. KEYTRUDA [Suspect]
     Active Substance: PEMBROLIZUMAB
     Dosage: 200 MILLIGRAM, EVERY THREE WEEKS
     Route: 042
     Dates: start: 20200402, end: 20200402

REACTIONS (19)
  - Adverse event [Unknown]
  - Dyspnoea [Not Recovered/Not Resolved]
  - Presyncope [Not Recovered/Not Resolved]
  - Dyspepsia [Unknown]
  - Vomiting [Not Recovered/Not Resolved]
  - Nasal congestion [Not Recovered/Not Resolved]
  - Nasal congestion [Not Recovered/Not Resolved]
  - Ear discomfort [Not Recovered/Not Resolved]
  - Dyspepsia [Not Recovered/Not Resolved]
  - Inappropriate schedule of product administration [Unknown]
  - Throat irritation [Unknown]
  - Dyspnoea [Not Recovered/Not Resolved]
  - Chest pain [Not Recovered/Not Resolved]
  - Ear discomfort [Unknown]
  - Chest pain [Unknown]
  - Pruritus [Not Recovered/Not Resolved]
  - Chest discomfort [Not Recovered/Not Resolved]
  - Throat irritation [Unknown]
  - Feeling of body temperature change [Not Recovered/Not Resolved]

NARRATIVE: CASE EVENT DATE: 2020
